FAERS Safety Report 5736138-6 (Version None)
Quarter: 2008Q2

REPORT INFORMATION
  Report Type: 
  Country: None (occurrence: None)
  Receive Date: 20080509
  Receipt Date: 20080429
  Transmission Date: 20081010
  Serious: Yes (Hospitalization)
  Sender: FDA-Public Use
  Company Number: 2008AL002722

PATIENT
  Age: 83 Year
  Sex: Female

DRUGS (7)
  1. DIGOXIN [Suspect]
     Indication: ARRHYTHMIA
     Dosage: BID; PO
     Route: 048
     Dates: start: 20080214, end: 20080428
  2. THYROID PILL [Concomitant]
  3. HEART MEDICATIONS [Concomitant]
  4. BLOOD PRESSURE MEDICATIONS [Concomitant]
  5. SIMVASTATIN [Concomitant]
  6. ASPIRIN [Concomitant]
  7. POTASSIUM SUPL [Concomitant]

REACTIONS (3)
  - ASTHENIA [None]
  - DIZZINESS [None]
  - MALAISE [None]
